FAERS Safety Report 25172172 (Version 1)
Quarter: 2025Q2

REPORT INFORMATION
  Report Type: Spontaneous
  Country: KR (occurrence: KR)
  Receive Date: 20250408
  Receipt Date: 20250408
  Transmission Date: 20250717
  Serious: Yes (Death)
  Sender: ELI LILLY AND CO
  Company Number: KR-ELI_LILLY_AND_COMPANY-KR202504004530

PATIENT
  Age: 67 Year
  Sex: Male

DRUGS (4)
  1. CYRAMZA [Suspect]
     Active Substance: RAMUCIRUMAB
     Indication: Product used for unknown indication
     Route: 042
     Dates: start: 20241124, end: 20241217
  2. CYRAMZA [Suspect]
     Active Substance: RAMUCIRUMAB
     Route: 042
     Dates: start: 20241224, end: 20241228
  3. CYRAMZA [Suspect]
     Active Substance: RAMUCIRUMAB
     Route: 042
     Dates: start: 20250102, end: 20250118
  4. CYRAMZA [Suspect]
     Active Substance: RAMUCIRUMAB
     Route: 042
     Dates: start: 20250203, end: 20250327

REACTIONS (1)
  - Death [Fatal]
